FAERS Safety Report 9401156 (Version 1)
Quarter: 2013Q3

REPORT INFORMATION
  Report Type: Report from Study
  Country: FR (occurrence: FR)
  Receive Date: 20130715
  Receipt Date: 20130715
  Transmission Date: 20140515
  Serious: Yes (Death, Hospitalization)
  Sender: FDA-Public Use
  Company Number: FR-TEVA-417635ISR

PATIENT
  Sex: Female

DRUGS (1)
  1. FENTANYL [Suspect]
     Route: 002

REACTIONS (2)
  - Death [Fatal]
  - Hospitalisation [Unknown]
